FAERS Safety Report 26016174 (Version 2)
Quarter: 2025Q4

REPORT INFORMATION
  Report Type: Report from Study
  Country: US (occurrence: US)
  Receive Date: 20251110
  Receipt Date: 20251112
  Transmission Date: 20260117
  Serious: Yes (Other)
  Sender: NUVATION BIO
  Company Number: US-NUVATION BIO INC.-2025NUV000252

PATIENT
  Age: 81 Year
  Sex: Female

DRUGS (3)
  1. IBTROZI [Suspect]
     Active Substance: TALETRECTINIB ADIPATE
     Indication: Lung neoplasm malignant
     Dosage: 600 MG, QD
     Dates: start: 20251006
  2. IBTROZI [Suspect]
     Active Substance: TALETRECTINIB ADIPATE
     Dosage: 400 MG, QD
     Dates: start: 202510
  3. ONDANSETRON [Concomitant]
     Active Substance: ONDANSETRON
     Dosage: UNK

REACTIONS (16)
  - Haematochezia [Unknown]
  - Foreign body in throat [Not Recovered/Not Resolved]
  - Epistaxis [Recovering/Resolving]
  - Muscular weakness [Unknown]
  - Nausea [Recovering/Resolving]
  - Retching [Recovering/Resolving]
  - Dizziness [Recovering/Resolving]
  - Diarrhoea [Recovering/Resolving]
  - Somnolence [Recovering/Resolving]
  - Musculoskeletal pain [Recovered/Resolved]
  - Heart rate increased [Recovered/Resolved]
  - Ear pain [Recovered/Resolved]
  - Intentional underdose [Unknown]
  - Skin burning sensation [Not Recovered/Not Resolved]
  - Bone pain [Not Recovered/Not Resolved]
  - Fatigue [Not Recovered/Not Resolved]

NARRATIVE: CASE EVENT DATE: 20251001
